FAERS Safety Report 20939523 (Version 1)
Quarter: 2022Q2

REPORT INFORMATION
  Report Type: Spontaneous
  Country: FR (occurrence: FR)
  Receive Date: 20220609
  Receipt Date: 20220609
  Transmission Date: 20220720
  Serious: Yes (Hospitalization)
  Sender: FDA-Public Use
  Company Number: None

PATIENT
  Age: 30 Year
  Sex: Female
  Weight: 44 kg

DRUGS (1)
  1. ACETAMINOPHEN [Suspect]
     Active Substance: ACETAMINOPHEN
     Indication: Pyrexia
     Dosage: 500 MILLIGRAM
     Route: 048
     Dates: start: 20220509, end: 20220509

REACTIONS (3)
  - Lip oedema [Recovered/Resolved]
  - Swollen tongue [Recovered/Resolved]
  - Burn oral cavity [Recovered/Resolved]

NARRATIVE: CASE EVENT DATE: 20220509
